FAERS Safety Report 4372309-1 (Version None)
Quarter: 2004Q2

REPORT INFORMATION
  Report Type: 
  Country: None (occurrence: None)
  Receive Date: 20040602
  Receipt Date: 20040519
  Transmission Date: 20050107
  Serious: Yes (Hospitalization)
  Sender: FDA-Public Use
  Company Number: 04P-062-0261691-00

PATIENT
  Sex: Female
  Weight: 70 kg

DRUGS (12)
  1. AKINETON [Suspect]
     Indication: SUICIDAL IDEATION
     Dosage: 140 MG, ONCE, PER ORAL
     Route: 048
     Dates: start: 20040519, end: 20040519
  2. ZOLPIDEM [Suspect]
     Indication: SUICIDAL IDEATION
     Dosage: 100 MG, ONCE, PER ORAL
     Route: 048
     Dates: start: 20040519, end: 20040519
  3. CITALOPRAM HYDROBROMIDE [Suspect]
     Indication: SUICIDAL IDEATION
     Dosage: 180 MG, ONCE, PER ORAL
     Route: 048
     Dates: start: 20040519, end: 20040519
  4. RISPERIDONE [Suspect]
     Indication: SUICIDAL IDEATION
     Dosage: 40 MG, ONCE, PER ORAL
     Route: 048
     Dates: start: 20040519, end: 20040519
  5. PROTHIPENDYL HYDROCHLORIDE [Suspect]
     Indication: SUICIDAL IDEATION
     Dosage: 1320 MG, ONCE, PER ORAL
     Route: 048
     Dates: start: 20040519, end: 20040519
  6. ISOPROMETHAZINE HYDROCHLORIDE [Suspect]
     Indication: SUICIDAL IDEATION
     Dosage: 250 MG, ONCE, PER ORAL
     Route: 048
     Dates: start: 20040519, end: 20040519
  7. AKINETON [Concomitant]
  8. ZOLPIDEM [Concomitant]
  9. CITALOPRAM HYDROBROMIDE [Concomitant]
  10. RISPERIDONE [Concomitant]
  11. PROTHIPENDYL HYDROCHLORIDE [Concomitant]
  12. ISOPROMETHAZINE HYDROCHLORIDE [Concomitant]

REACTIONS (5)
  - MULTIPLE DRUG OVERDOSE INTENTIONAL [None]
  - MYDRIASIS [None]
  - SOPOR [None]
  - SUICIDAL IDEATION [None]
  - TACHYCARDIA [None]
